FAERS Safety Report 9274791 (Version 1)
Quarter: 2013Q2

REPORT INFORMATION
  Report Type: Other
  Country: GB (occurrence: GB)
  Receive Date: 20130507
  Receipt Date: 20130507
  Transmission Date: 20140414
  Serious: Yes (Life-Threatening, Hospitalization)
  Sender: FDA-Public Use
  Company Number: GB-TARO PHARMACEUTICALS U.S.A., INC-2013SUN00539

PATIENT
  Age: 79 Year
  Sex: Male
  Weight: 80 kg

DRUGS (6)
  1. WARFARIN [Suspect]
     Indication: ATRIAL FIBRILLATION
     Route: 065
  2. ASPIRIN [Suspect]
     Indication: PRODUCT USED FOR UNKNOWN INDICATION
     Dosage: 75 MG, OD
     Route: 065
  3. DIGOXIN [Concomitant]
     Dosage: 125 MCG, OD
  4. FUROSEMIDE [Concomitant]
     Dosage: 120 MG, OD
  5. LISINOPRIL [Concomitant]
     Dosage: 10 MG, OD
  6. METOLAZONE [Concomitant]
     Dosage: 2.5 MG, TWO PER ONE WEEK

REACTIONS (2)
  - Gastrointestinal ulcer [Recovering/Resolving]
  - Upper gastrointestinal haemorrhage [Recovering/Resolving]
